FAERS Safety Report 5091398-2 (Version None)
Quarter: 2006Q3

REPORT INFORMATION
  Report Type: 
  Country: None (occurrence: None)
  Receive Date: 20060824
  Receipt Date: 20060810
  Transmission Date: 20061208
  Serious: Yes (Hospitalization)
  Sender: FDA-Public Use
  Company Number: CH-2006-023610

PATIENT
  Age: 87 Year
  Sex: Male

DRUGS (7)
  1. SOTALOL HYDROCHLORIDE [Suspect]
     Dosage: 40 MG, 2X/DAY, ORAL
     Route: 048
     Dates: start: 20060101, end: 20060121
  2. ASPIRIN [Concomitant]
  3. TOREM (TORASEMIDE) [Concomitant]
  4. CARDURA [Concomitant]
  5. ATORVASTATIN CALCIUM [Concomitant]
  6. ENALAPRIL MALEATE [Concomitant]
  7. MAGNESIUM DIASPORAL (MAGNESIUM CITRATE) [Concomitant]

REACTIONS (4)
  - BUNDLE BRANCH BLOCK LEFT [None]
  - BUNDLE BRANCH BLOCK RIGHT [None]
  - CONFUSIONAL STATE [None]
  - HYPOTENSION [None]
